FAERS Safety Report 7575735-2 (Version None)
Quarter: 2011Q2

REPORT INFORMATION
  Report Type: 
  Country: None (occurrence: None)
  Receive Date: 20110628
  Receipt Date: 20110615
  Transmission Date: 20111010
  Serious: No
  Sender: FDA-Public Use
  Company Number: US-BIOGENIDEC-2011BI015416

PATIENT
  Sex: Female

DRUGS (2)
  1. TYSABRI [Suspect]
     Indication: MULTIPLE SCLEROSIS
     Route: 042
     Dates: start: 20101011
  2. TYSABRI [Suspect]
     Route: 042
     Dates: start: 20061009, end: 20100104

REACTIONS (5)
  - AMNESIA [None]
  - ALOPECIA [None]
  - PITUITARY TUMOUR BENIGN [None]
  - PARALYSIS [None]
  - WEIGHT INCREASED [None]
